FAERS Safety Report 19206394 (Version 1)
Quarter: 2021Q2

REPORT INFORMATION
  Report Type: Spontaneous
  Country: US (occurrence: US)
  Receive Date: 20210503
  Receipt Date: 20210503
  Transmission Date: 20210717
  Serious: Yes (Hospitalization)
  Sender: FDA-Public Use
  Company Number: None

PATIENT
  Age: 64 Year
  Sex: Male

DRUGS (10)
  1. CARVEDILOL, CLOPIDOGREL [Concomitant]
  2. ESOMEPRAMAG,FARXIGA [Concomitant]
  3. ENBREL [Suspect]
     Active Substance: ETANERCEPT
     Indication: RHEUMATOID ARTHRITIS
     Dosage: ?          OTHER FREQUENCY:WEEKLY;?
     Route: 058
     Dates: start: 20190123
  4. POT CL MIRCO, ROPINROLE [Concomitant]
  5. FENOFIBRATE, FINASTERIDE, FOLIC ACID [Concomitant]
  6. OMEPRAZOLE, ONE TOUCH [Concomitant]
  7. LISINOPRIL, METFORMIN, METHOTREXATE [Concomitant]
  8. SIMVASTATIN, SPIRONOLACT, TADALAFIL, TESTOST CYP [Concomitant]
  9. ALPRAZOLAM. [Concomitant]
     Active Substance: ALPRAZOLAM
  10. FUROSEMIDE, HYDROCO/APAP [Concomitant]

REACTIONS (2)
  - COVID-19 [None]
  - Pneumonia [None]

NARRATIVE: CASE EVENT DATE: 20210501
